FAERS Safety Report 9925877 (Version 2)
Quarter: 2019Q3

REPORT INFORMATION
  Report Type: Spontaneous
  Country: US (occurrence: US)
  Receive Date: 20140226
  Receipt Date: 20190827
  Transmission Date: 20191005
  Serious: Yes (Life-Threatening, Hospitalization)
  Sender: FDA-Public Use
  Company Number: US-FRI-1000054559

PATIENT
  Sex: Female
  Weight: 76 kg

DRUGS (1)
  1. CEFTAROLINE FOSAMIL UNK [Suspect]
     Active Substance: CEFTAROLINE FOSAMIL
     Indication: PNEUMONIA STAPHYLOCOCCAL
     Dosage: 600 MG, Q12H
     Route: 042

REACTIONS (1)
  - Eosinophilic pneumonia acute [Recovering/Resolving]
